FAERS Safety Report 9243166 (Version 1)
Quarter: 2013Q2

REPORT INFORMATION
  Report Type: Spontaneous
  Country: BR (occurrence: BR)
  Receive Date: 20130419
  Receipt Date: 20130419
  Transmission Date: 20140414
  Serious: Yes (Other)
  Sender: FDA-Public Use
  Company Number: BR-PFIZER INC-2013122439

PATIENT
  Age: 79 Year
  Sex: Female
  Weight: 59 kg

DRUGS (6)
  1. ATENOLOL [Suspect]
     Indication: ANGINA PECTORIS
     Dosage: 50 MG, 1X/DAY
     Route: 048
     Dates: start: 2011
  2. NEXIUM [Suspect]
     Indication: GASTRIC ULCER
     Dosage: 40 MG, 1X/DAY
     Route: 048
     Dates: start: 2011, end: 201304
  3. BENICAR [Concomitant]
     Indication: ANGINA PECTORIS
     Dosage: UNK
     Route: 065
     Dates: start: 2011
  4. SUSTRATE [Concomitant]
     Indication: ANGINA PECTORIS
     Dosage: UNK
     Route: 065
     Dates: start: 2011
  5. ATORVASTATIN CALCIUM [Concomitant]
     Indication: ANGINA PECTORIS
     Dosage: UNK
     Route: 065
     Dates: start: 2011
  6. SOMALGIN [Concomitant]
     Indication: ANGINA PECTORIS
     Dosage: UNK
     Route: 065
     Dates: start: 2011

REACTIONS (6)
  - Dengue fever [Recovered/Resolved]
  - Dyskinesia [Recovered/Resolved]
  - Dysarthria [Recovered/Resolved]
  - Mass [Recovered/Resolved]
  - Generalised oedema [Recovered/Resolved]
  - Gastric ulcer [Not Recovered/Not Resolved]
